FAERS Safety Report 20492195 (Version 1)
Quarter: 2022Q1

REPORT INFORMATION
  Report Type: Spontaneous
  Country: US (occurrence: US)
  Receive Date: 20220218
  Receipt Date: 20220218
  Transmission Date: 20220423
  Serious: No
  Sender: FDA-Public Use
  Company Number: US-PFIZER INC-202200270894

PATIENT
  Age: 62 Year
  Sex: Male
  Weight: 132.09 kg

DRUGS (1)
  1. PAXLOVID [Suspect]
     Active Substance: NIRMATRELVIR\RITONAVIR
     Indication: COVID-19
     Dosage: 2X/DAY (9 AM AND 9 PM)
     Dates: start: 20220210

REACTIONS (2)
  - Hiccups [Unknown]
  - Nervousness [Unknown]

NARRATIVE: CASE EVENT DATE: 20220201
